FAERS Safety Report 11796902 (Version 3)
Quarter: 2016Q1

REPORT INFORMATION
  Report Type: Report from Study
  Country: JP (occurrence: JP)
  Receive Date: 20151203
  Receipt Date: 20160112
  Transmission Date: 20160525
  Serious: Yes (Death, Hospitalization)
  Sender: FDA-Public Use
  Company Number: JP-BAYER-2015-386735

PATIENT
  Age: 80 Year
  Sex: Female

DRUGS (17)
  1. FEBUXOSTAT. [Concomitant]
     Active Substance: FEBUXOSTAT
     Dosage: DAILY DOSE 10 MG
     Route: 048
     Dates: start: 20140624, end: 20140826
  2. ADEMPAS [Suspect]
     Active Substance: RIOCIGUAT
     Indication: PULMONARY HYPERTENSION
     Dosage: 1 MG/D, TID
     Route: 048
     Dates: start: 20141219, end: 20150107
  3. ADEMPAS [Suspect]
     Active Substance: RIOCIGUAT
     Indication: PULMONARY HYPERTENSION
     Dosage: 3 MG/D, TID
     Route: 048
     Dates: start: 20140722, end: 20140725
  4. WARFARIN POTASSIUM [Concomitant]
     Active Substance: WARFARIN POTASSIUM
     Indication: PULMONARY HYPERTENSION
     Dosage: DAILY DOSE 1.5 MG
     Route: 048
     Dates: start: 20140624, end: 20150107
  5. PARIET [Concomitant]
     Active Substance: RABEPRAZOLE SODIUM
     Dosage: DAILY DOSE 10 MG
     Route: 048
     Dates: start: 20140624, end: 20150108
  6. ADEMPAS [Suspect]
     Active Substance: RIOCIGUAT
     Indication: PULMONARY HYPERTENSION
     Dosage: DAILY DOSE 1.5 MG
     Route: 048
     Dates: start: 20140722, end: 20141228
  7. LOXONIN [Suspect]
     Active Substance: LOXOPROFEN SODIUM
     Indication: CROWNED DENS SYNDROME
     Dosage: DAILY DOSE 60 MG
     Route: 048
     Dates: start: 20141009, end: 20141010
  8. LASIX [Concomitant]
     Active Substance: FUROSEMIDE
     Indication: PULMONARY HYPERTENSION
     Dosage: DAILY DOSE 40 MG
     Route: 048
     Dates: start: 20140624, end: 20150107
  9. MAINTATE [Concomitant]
     Active Substance: BISOPROLOL FUMARATE
     Dosage: DAILY DOSE .625 MG
     Route: 048
     Dates: start: 20140624, end: 20150107
  10. TAKEPRON [Concomitant]
     Active Substance: LANSOPRAZOLE
     Dosage: DAILY DOSE 15 MG
     Route: 048
     Dates: start: 20140624, end: 20150107
  11. MAGMITT [Concomitant]
     Active Substance: MAGNESIUM OXIDE
     Dosage: DAILY DOSE 500 MG
     Route: 048
     Dates: start: 20140624, end: 20150107
  12. FEBUXOSTAT. [Concomitant]
     Active Substance: FEBUXOSTAT
     Dosage: DAILY DOSE 10 MG
     Route: 048
     Dates: start: 20140624, end: 20140826
  13. WARFARIN [Concomitant]
     Active Substance: WARFARIN
     Indication: PULMONARY HYPERTENSION
     Dosage: DAILY DOSE 1.5 MG
     Route: 048
     Dates: start: 20140624, end: 20150107
  14. ADEMPAS [Suspect]
     Active Substance: RIOCIGUAT
     Indication: PULMONARY HYPERTENSION
     Dosage: 1.5 MG/D, TID
     Route: 048
     Dates: start: 20140807, end: 20141218
  15. TRACLEER [Concomitant]
     Active Substance: BOSENTAN
     Indication: PULMONARY HYPERTENSION
     Dosage: DAILY DOSE 125 MG
     Route: 048
     Dates: start: 20140801, end: 20140826
  16. ADEMPAS [Suspect]
     Active Substance: RIOCIGUAT
     Indication: PULMONARY HYPERTENSION
     Dosage: 4.5 MG/D, TID
     Route: 048
     Dates: start: 20140726, end: 20140806
  17. ALDACTONE A [Concomitant]
     Active Substance: SPIRONOLACTONE
     Indication: PULMONARY HYPERTENSION
     Dosage: DAILY DOSE 25 MG
     Route: 048
     Dates: start: 20140624, end: 20150107

REACTIONS (4)
  - Crowned dens syndrome [Recovered/Resolved]
  - Renal impairment [Recovered/Resolved]
  - Right ventricular failure [Fatal]
  - Ileus [Recovering/Resolving]

NARRATIVE: CASE EVENT DATE: 20140807
